FAERS Safety Report 5591120-7 (Version None)
Quarter: 2008Q1

REPORT INFORMATION
  Report Type: 
  Country: None (occurrence: None)
  Receive Date: 20080110
  Receipt Date: 20080107
  Transmission Date: 20080703
  Serious: Yes (Hospitalization)
  Sender: FDA-Public Use
  Company Number: 2007SP013393

PATIENT
  Age: 66 Year
  Sex: Male
  Weight: 50 kg

DRUGS (10)
  1. TEMODAL [Suspect]
     Indication: GLIOBLASTOMA MULTIFORME
     Dosage: SEE IMAGE
     Route: 048
     Dates: start: 20061103, end: 20061107
  2. TEMODAL [Suspect]
     Indication: GLIOBLASTOMA MULTIFORME
     Dosage: SEE IMAGE
     Route: 048
     Dates: start: 20061201, end: 20061205
  3. TEMODAL [Suspect]
     Indication: GLIOBLASTOMA MULTIFORME
     Dosage: SEE IMAGE
     Route: 048
     Dates: start: 20061229, end: 20070102
  4. TEMODAL [Suspect]
     Indication: GLIOBLASTOMA MULTIFORME
     Dosage: SEE IMAGE
     Route: 048
     Dates: start: 20070126, end: 20070130
  5. TEMODAL [Suspect]
     Indication: GLIOBLASTOMA MULTIFORME
     Dosage: SEE IMAGE
     Route: 048
     Dates: start: 20070223, end: 20070227
  6. TEMODAL [Suspect]
     Indication: GLIOBLASTOMA MULTIFORME
     Dosage: SEE IMAGE
     Route: 048
     Dates: start: 20070323, end: 20070327
  7. ZOFRAN ZYDIS [Concomitant]
  8. ZONISAMIDE [Concomitant]
  9. GLYSENNID [Concomitant]
  10. MAGNESIUM OXIDE [Concomitant]

REACTIONS (7)
  - C-REACTIVE PROTEIN INCREASED [None]
  - HAEMOPHILUS INFECTION [None]
  - INFLAMMATION [None]
  - NEUTROPHIL COUNT INCREASED [None]
  - PNEUMONIA [None]
  - PNEUMONIA PRIMARY ATYPICAL [None]
  - SPUTUM CULTURE POSITIVE [None]
